FAERS Safety Report 4553885-2 (Version None)
Quarter: 2005Q1

REPORT INFORMATION
  Report Type: 
  Country: None (occurrence: None)
  Receive Date: 20050113
  Receipt Date: 20050113
  Transmission Date: 20050727
  Serious: Yes (Other)
  Sender: FDA-Public Use
  Company Number: None

PATIENT
  Age: 50 Year
  Sex: Female
  Weight: 73.5 kg

DRUGS (3)
  1. NAVELBINE [Suspect]
     Indication: BREAST CANCER
     Dosage: 25MG/M2, IV Q WK X 12
     Route: 042
     Dates: start: 20041027, end: 20041215
  2. HERCEPTIN [Suspect]
     Indication: BREAST CANCER
     Dosage: 2MG/KG, IV, 9 WK X 12
     Route: 042
     Dates: start: 20041013, end: 20041229
  3. COMPAZINE [Concomitant]

REACTIONS (2)
  - ALANINE AMINOTRANSFERASE INCREASED [None]
  - LIVER FUNCTION TEST ABNORMAL [None]
